FAERS Safety Report 10574866 (Version 2)
Quarter: 2014Q4

REPORT INFORMATION
  Report Type: Spontaneous
  Country: SA (occurrence: SA)
  Receive Date: 20141110
  Receipt Date: 20141110
  Transmission Date: 20150529
  Serious: Yes (Other)
  Sender: FDA-Public Use
  Company Number: SA-RANBAXY-2012R1-60758

PATIENT
  Age: 21 Year
  Sex: Female

DRUGS (1)
  1. ISOTRETINOIN [Suspect]
     Active Substance: ISOTRETINOIN
     Indication: HIDRADENITIS
     Dosage: 40 MG, DAILY
     Route: 048

REACTIONS (3)
  - Crohn^s disease [Recovering/Resolving]
  - Weight decreased [Recovering/Resolving]
  - Iron deficiency anaemia [Recovering/Resolving]
